FAERS Safety Report 6261193-7 (Version None)
Quarter: 2009Q3

REPORT INFORMATION
  Report Type: 
  Country: None (occurrence: None)
  Receive Date: 20090709
  Receipt Date: 20080728
  Transmission Date: 20100115
  Serious: No
  Sender: FDA-Public Use
  Company Number: US-KINGPHARMUSA00001-K200800898

PATIENT
  Sex: Female

DRUGS (3)
  1. LEVOXYL [Suspect]
     Indication: THYROID HORMONE REPLACEMENT THERAPY
     Dosage: 112 MCG, QD
  2. LEVOXYL [Suspect]
     Dosage: 106 MCG, QD
  3. LEVOXYL [Suspect]
     Dosage: 100 MCG, QD

REACTIONS (3)
  - HYPERTHYROIDISM [None]
  - HYPOTHYROIDISM [None]
  - THYROID FUNCTION TEST ABNORMAL [None]
